FAERS Safety Report 4299224-6 (Version None)
Quarter: 2004Q1

REPORT INFORMATION
  Report Type: 
  Country: None (occurrence: None)
  Receive Date: 20040217
  Receipt Date: 20040203
  Transmission Date: 20041129
  Serious: Yes (Life-Threatening)
  Sender: FDA-Public Use
  Company Number: K200400146

PATIENT
  Age: 60 Year
  Sex: Female
  Weight: 90.7 kg

DRUGS (1)
  1. THROMBIN-JMI [Suspect]
     Indication: CARDIAC PACEMAKER INSERTION
     Dosage: 20000 U, SINGLE, TOPICAL
     Route: 061
     Dates: start: 20040101, end: 20040101

REACTIONS (3)
  - HYPOTENSION [None]
  - IMPLANT SITE REACTION [None]
  - SWELLING [None]
